FAERS Safety Report 8725669 (Version 2)
Quarter: 2012Q4

REPORT INFORMATION
  Report Type: 
  Country: US (occurrence: US)
  Receive Date: 20120815
  Receipt Date: 20121205
  Transmission Date: 20130627
  Serious: Yes (Death)
  Sender: FDA-Public Use
  Company Number: US-ROCHE-1099647

PATIENT
  Age: 58 Year
  Sex: Male

DRUGS (2)
  1. LUCENTIS [Suspect]
     Indication: CYSTOID MACULAR OEDEMA
     Route: 050
     Dates: start: 20120626, end: 20120626
  2. LUCENTIS [Suspect]
     Indication: RETINAL VEIN OCCLUSION

REACTIONS (1)
  - Myocardial infarction [Fatal]
